FAERS Safety Report 6159388-6 (Version None)
Quarter: 2009Q2

REPORT INFORMATION
  Report Type: 
  Country: None (occurrence: None)
  Receive Date: 20090417
  Receipt Date: 20090410
  Transmission Date: 20091009
  Serious: Yes (Other)
  Sender: FDA-Public Use
  Company Number: DE-ABBOTT-09P-062-0567938-00

PATIENT
  Age: 30 Month

DRUGS (5)
  1. ERGENYL SYRUP [Suspect]
     Indication: DRUG USE FOR UNKNOWN INDICATION
     Route: 065
  2. ERGENYL CHRONO [Suspect]
     Indication: DRUG USE FOR UNKNOWN INDICATION
  3. PHENOBARBITAL [Interacting]
     Indication: DRUG USE FOR UNKNOWN INDICATION
     Route: 065
  4. PHENOBARBITAL [Interacting]
     Dosage: DOSE WAS REDUCED BY HALF
     Route: 065
     Dates: start: 20090101
  5. OMEPRAZOL [Concomitant]
     Indication: DRUG USE FOR UNKNOWN INDICATION
     Route: 065

REACTIONS (3)
  - CONVULSION [None]
  - DRUG INTERACTION [None]
  - DRUG LEVEL DECREASED [None]
